FAERS Safety Report 7635449-7 (Version None)
Quarter: 2011Q3

REPORT INFORMATION
  Report Type: 
  Country: None (occurrence: None)
  Receive Date: 20110718
  Receipt Date: 20110707
  Transmission Date: 20111222
  Serious: Yes (Other)
  Sender: FDA-Public Use
  Company Number: 1000022184

PATIENT
  Age: 73 Year
  Sex: Male

DRUGS (4)
  1. BERODUAL (IPRATROPIUM, FENOTEROL) [Concomitant]
  2. ROFLUMILAST (ROFLUMILAST) (TABLETS) [Suspect]
     Indication: CHRONIC OBSTRUCTIVE PULMONARY DISEASE
     Dates: start: 20110623, end: 20110703
  3. PREDNISOLONE [Concomitant]
  4. ONBREZ (INDACATEROL) [Concomitant]

REACTIONS (1)
  - DELIRIUM [None]
